FAERS Safety Report 13354499 (Version 1)
Quarter: 2017Q1

REPORT INFORMATION
  Report Type: Spontaneous
  Country: US (occurrence: US)
  Receive Date: 20170321
  Receipt Date: 20170321
  Transmission Date: 20170429
  Serious: Yes (Other)
  Sender: FDA-Public Use
  Company Number: US-CELGENEUS-USA-2017033999

PATIENT
  Age: 60 Year
  Sex: Female

DRUGS (5)
  1. OTEZLA [Suspect]
     Active Substance: APREMILAST
     Indication: HYPOTHYROIDISM
     Dosage: 60 MILLIGRAM
     Route: 048
     Dates: start: 20160329
  2. OTEZLA [Suspect]
     Active Substance: APREMILAST
     Indication: FATTY LIVER ALCOHOLIC
  3. HUMIRA [Concomitant]
     Active Substance: ADALIMUMAB
     Indication: PSORIASIS
     Dosage: 40 MILLIGRAM
     Route: 065
     Dates: start: 20160516, end: 20161102
  4. OTEZLA [Suspect]
     Active Substance: APREMILAST
     Indication: GASTROOESOPHAGEAL REFLUX DISEASE
  5. SIMPONI [Concomitant]
     Active Substance: GOLIMUMAB
     Indication: PSORIASIS
     Dosage: 50 MILLIGRAM
     Route: 065

REACTIONS (1)
  - Breast cancer [Recovered/Resolved with Sequelae]

NARRATIVE: CASE EVENT DATE: 20170228
